FAERS Safety Report 13241407 (Version 2)
Quarter: 2017Q1

REPORT INFORMATION
  Report Type: Spontaneous
  Country: US (occurrence: US)
  Receive Date: 20170216
  Receipt Date: 20170320
  Transmission Date: 20170428
  Serious: Yes (Death, Hospitalization)
  Sender: FDA-Public Use
  Company Number: US-MERRIMACK PHARMACEUTICALS, INC.-MER-2017-000010

PATIENT

DRUGS (3)
  1. LEUCOVORIN                         /00566701/ [Concomitant]
     Active Substance: LEUCOVORIN
     Indication: PRODUCT USED FOR UNKNOWN INDICATION
     Dosage: UNK
     Route: 042
     Dates: start: 20161114, end: 20161114
  2. 5 FU [Concomitant]
     Active Substance: FLUOROURACIL
     Indication: PRODUCT USED FOR UNKNOWN INDICATION
     Dosage: 3000 MG, UNK
     Dates: start: 20161114, end: 20161114
  3. ONIVYDE [Suspect]
     Active Substance: IRINOTECAN HYDROCHLORIDE
     Indication: PRODUCT USED FOR UNKNOWN INDICATION
     Dosage: 94 MG, ONE TIME DOSE
     Route: 042
     Dates: start: 20161114, end: 20161114

REACTIONS (4)
  - Death [Fatal]
  - Leukopenia [Unknown]
  - Small intestinal obstruction [Unknown]
  - Disease progression [Unknown]

NARRATIVE: CASE EVENT DATE: 20161129
